FAERS Safety Report 8014408-9 (Version None)
Quarter: 2011Q4

REPORT INFORMATION
  Report Type: 
  Country: None (occurrence: None)
  Receive Date: 20111229
  Receipt Date: 20111220
  Transmission Date: 20120403
  Serious: Yes (Other)
  Sender: FDA-Public Use
  Company Number: US-ELI_LILLY_AND_COMPANY-US201112006652

PATIENT
  Sex: Female

DRUGS (2)
  1. CYMBALTA [Suspect]
     Dosage: 30 MG, BID
     Dates: start: 20110718, end: 20111207
  2. LYRICA [Concomitant]
     Dosage: 100 MG, UNKNOWN

REACTIONS (2)
  - LIVER FUNCTION TEST ABNORMAL [None]
  - JAUNDICE [None]
